FAERS Safety Report 4953611-9 (Version None)
Quarter: 2006Q1

REPORT INFORMATION
  Report Type: 
  Country: None (occurrence: None)
  Receive Date: 20060324
  Receipt Date: 20060314
  Transmission Date: 20060701
  Serious: Yes (Hospitalization, Disabling)
  Sender: FDA-Public Use
  Company Number: US-MERCK-0603USA02428

PATIENT
  Age: 54 Year
  Sex: Male
  Weight: 195 kg

DRUGS (4)
  1. VIOXX [Suspect]
     Indication: ARTHRITIS
     Route: 048
     Dates: start: 20000201, end: 20040401
  2. PRAVACHOL [Concomitant]
     Route: 065
  3. GLYBURIDE [Concomitant]
     Route: 065
  4. METFORMIN [Concomitant]
     Route: 065

REACTIONS (4)
  - INFECTION [None]
  - JOINT SPRAIN [None]
  - LACERATION [None]
  - THROMBOSIS [None]
